FAERS Safety Report 5229840-6 (Version None)
Quarter: 2007Q1

REPORT INFORMATION
  Report Type: 
  Country: None (occurrence: None)
  Receive Date: 20070206
  Receipt Date: 20061106
  Transmission Date: 20070707
  Serious: No
  Sender: FDA-Public Use
  Company Number: S2006US19869

PATIENT
  Sex: Female

DRUGS (2)
  1. PAXIL [Suspect]
  2. ATENOLOL [Suspect]

REACTIONS (2)
  - ADVERSE EVENT [None]
  - DRUG INTERACTION [None]
